FAERS Safety Report 8540457-8 (Version None)
Quarter: 2012Q3

REPORT INFORMATION
  Report Type: 
  Country: None (occurrence: None)
  Receive Date: 20120726
  Receipt Date: 20110718
  Transmission Date: 20120928
  Serious: No
  Sender: FDA-Public Use
  Company Number: US-ASTRAZENECA-2011SE43015

PATIENT
  Age: 12827 Day
  Sex: Female
  Weight: 132 kg

DRUGS (10)
  1. TRAZODONE HCL [Concomitant]
     Route: 048
     Dates: start: 20070809
  2. SYNTHROID [Concomitant]
     Route: 048
     Dates: start: 20070809
  3. FELDENE [Concomitant]
     Route: 048
     Dates: start: 20070809
  4. CYMBALTA [Concomitant]
     Dosage: 30 TO 60 MG PO QD
     Route: 048
     Dates: start: 20070809
  5. ATIVAN [Concomitant]
     Dosage: 0.5 MG 1 PO BID PRN
     Route: 048
     Dates: start: 20070809
  6. LITHIUM CARBONATE [Concomitant]
     Route: 048
     Dates: start: 20070809
  7. TEGRETOL-XR [Concomitant]
     Route: 048
     Dates: start: 20070809
  8. ZOCOR [Concomitant]
     Route: 048
     Dates: start: 20070809
  9. GEODON [Concomitant]
     Route: 048
     Dates: start: 20070809
  10. SEROQUEL [Suspect]
     Route: 048

REACTIONS (13)
  - ASTHMA [None]
  - HYPOTHYROIDISM [None]
  - CERVICOBRACHIAL SYNDROME [None]
  - NECK PAIN [None]
  - CONTUSION [None]
  - MIGRAINE [None]
  - PNEUMONIA [None]
  - ARTHRALGIA [None]
  - SCIATICA [None]
  - DIARRHOEA [None]
  - OBESITY [None]
  - SPINAL PAIN [None]
  - TYPE 2 DIABETES MELLITUS [None]
